FAERS Safety Report 8779343 (Version 1)
Quarter: 2012Q4

REPORT INFORMATION
  Report Type: 
  Country: JP (occurrence: JP)
  Receive Date: 20120911
  Receipt Date: 20120911
  Transmission Date: 20130627
  Serious: Yes (Hospitalization)
  Sender: FDA-Public Use
  Company Number: JP-PFIZER INC-2012218263

PATIENT
  Age: 63 Year
  Sex: Female

DRUGS (1)
  1. AROMASIN [Suspect]
     Indication: BREAST CANCER FEMALE
     Dosage: 25 mg, 1x/day
     Route: 048
     Dates: start: 2010

REACTIONS (2)
  - Organising pneumonia [Unknown]
  - Condition aggravated [Unknown]
